FAERS Safety Report 17946405 (Version 1)
Quarter: 2020Q2

REPORT INFORMATION
  Report Type: Spontaneous
  Country: US (occurrence: US)
  Receive Date: 20200626
  Receipt Date: 20200626
  Transmission Date: 20200714
  Serious: No
  Sender: FDA-Public Use
  Company Number: US-AMGEN INC.-USASP2020102177

PATIENT

DRUGS (2)
  1. LAXATIVE [BISACODYL] [Concomitant]
     Active Substance: BISACODYL
     Indication: CONSTIPATION
  2. AIMOVIG [Suspect]
     Active Substance: ERENUMAB-AOOE
     Indication: MIGRAINE
     Dosage: UNK
     Route: 065

REACTIONS (2)
  - Constipation [Unknown]
  - Abdominal pain upper [Not Recovered/Not Resolved]
